FAERS Safety Report 10144291 (Version 2)
Quarter: 2014Q2

REPORT INFORMATION
  Report Type: Report from Study
  Country: NL (occurrence: NL)
  Receive Date: 20140430
  Receipt Date: 20140519
  Transmission Date: 20141212
  Serious: Yes (Other)
  Sender: FDA-Public Use
  Company Number: PHHY2014NL050723

PATIENT
  Age: 64 Year
  Sex: Female

DRUGS (3)
  1. SANDOSTATIN LAR [Suspect]
     Indication: NEUROENDOCRINE TUMOUR
     Dosage: 30 MG PER 2 ML, ONCE EVERY 4 WEEKS
     Route: 030
  2. PREDNISOLONE [Concomitant]
     Dosage: 50 MG, QD
  3. DURATEARS [Concomitant]
     Dosage: 15 ML, 1 DROP PER DAY

REACTIONS (1)
  - VIIth nerve paralysis [Not Recovered/Not Resolved]
